FAERS Safety Report 24213771 (Version 1)
Quarter: 2024Q3

REPORT INFORMATION
  Report Type: Spontaneous
  Country: KR (occurrence: KR)
  Receive Date: 20240815
  Receipt Date: 20240815
  Transmission Date: 20241017
  Serious: Yes (Other)
  Sender: PFIZER
  Company Number: KR-PFIZER INC-PV202400105647

PATIENT
  Sex: Male

DRUGS (1)
  1. PAXLOVID [Suspect]
     Active Substance: NIRMATRELVIR\RITONAVIR
     Indication: COVID-19 treatment
     Dosage: UNK
     Route: 048
     Dates: start: 20240812, end: 20240812

REACTIONS (4)
  - Angina pectoris [Unknown]
  - Cardiac discomfort [Unknown]
  - Diarrhoea [Unknown]
  - Dysgeusia [Unknown]

NARRATIVE: CASE EVENT DATE: 20240812
